FAERS Safety Report 6407025-5 (Version None)
Quarter: 2009Q4

REPORT INFORMATION
  Report Type: 
  Country: None (occurrence: None)
  Receive Date: 20091020
  Receipt Date: 20091008
  Transmission Date: 20100525
  Serious: Yes (Death)
  Sender: FDA-Public Use
  Company Number: FR-PFIZER INC-2009282309

PATIENT
  Age: 82 Year

DRUGS (11)
  1. IRINOTECAN HCL [Suspect]
     Indication: COLORECTAL CANCER
     Dosage: 150 MG/M2 (240 MG), CYCLIC
     Dates: start: 20050411, end: 20050411
  2. FLUOROURACIL [Suspect]
     Indication: COLORECTAL CANCER
     Dosage: 400 MG/M2 (650 MG), CYCLIC
     Route: 040
     Dates: start: 20050411, end: 20050411
  3. FLUOROURACIL [Suspect]
     Dosage: 2400 MG/M2 (3900 MG), CYCLIC
     Route: 041
     Dates: start: 20050411, end: 20050413
  4. FOLINIC ACID [Suspect]
     Indication: COLORECTAL CANCER
     Dosage: 400 MG/M2 (650 MG), CYCLIC
     Route: 042
     Dates: start: 20050411, end: 20050411
  5. SECTRAL [Concomitant]
     Dosage: 100 MG (0.5 TABLET), 2X/DAY
  6. KALEORID [Concomitant]
  7. IMOVANE [Concomitant]
     Dosage: 1 DF, 1X/DAY
  8. TANAKAN [Concomitant]
     Dosage: 1 DF, 3X/DAY
  9. FORLAX [Concomitant]
     Dosage: 1 DF, 2X/DAY
  10. DI-ANTALVIC [Concomitant]
     Dosage: 4 DF/DAY
  11. CORDARONE [Concomitant]
     Dosage: 1 DF, 3X/DAY

REACTIONS (1)
  - PULMONARY EMBOLISM [None]
